FAERS Safety Report 15323710 (Version 2)
Quarter: 2018Q4

REPORT INFORMATION
  Report Type: Report from Study
  Country: None (occurrence: US)
  Receive Date: 20180828
  Receipt Date: 20181011
  Transmission Date: 20190204
  Serious: Yes (Other)
  Sender: FDA-Public Use
  Company Number: US-ABBVIE-18K-163-2430346-00

PATIENT
  Age: 67 Year
  Sex: Female

DRUGS (2)
  1. IBUPROFEN. [Suspect]
     Active Substance: IBUPROFEN
     Indication: PRODUCT USED FOR UNKNOWN INDICATION
     Route: 065
  2. HUMIRA [Suspect]
     Active Substance: ADALIMUMAB
     Indication: RHEUMATOID ARTHRITIS
     Route: 058

REACTIONS (26)
  - Carpal tunnel syndrome [Unknown]
  - Abdominal pain [Unknown]
  - Vomiting [Unknown]
  - Arthralgia [Unknown]
  - Neck pain [Unknown]
  - Cervix haemorrhage uterine [Unknown]
  - Adverse drug reaction [Unknown]
  - Ovarian cyst [Unknown]
  - Exostosis [Unknown]
  - Food intolerance [Unknown]
  - Gastritis [Unknown]
  - Cervix injury [Unknown]
  - Drug effect variable [Unknown]
  - Osteoporosis [Unknown]
  - Sensitivity to weather change [Unknown]
  - Type 2 diabetes mellitus [Unknown]
  - Rheumatoid arthritis [Unknown]
  - Diarrhoea [Recovered/Resolved]
  - Chest pain [Unknown]
  - Knee arthroplasty [Unknown]
  - Musculoskeletal pain [Unknown]
  - Temperature intolerance [Unknown]
  - Dehydration [Unknown]
  - Fatigue [Unknown]
  - Vaginal haemorrhage [Unknown]
  - Diarrhoea [Unknown]

NARRATIVE: CASE EVENT DATE: 2016
